FAERS Safety Report 7015852-9 (Version None)
Quarter: 2010Q3

REPORT INFORMATION
  Report Type: 
  Country: None (occurrence: None)
  Receive Date: 20100927
  Receipt Date: 20091022
  Transmission Date: 20110219
  Serious: No
  Sender: FDA-Public Use
  Company Number: US-ASTRAZENECA-2009SE22038

PATIENT
  Age: 25561 Day
  Sex: Female
  Weight: 59.9 kg

DRUGS (3)
  1. ARIMIDEX [Suspect]
     Indication: BREAST CANCER
     Route: 048
     Dates: start: 20090901
  2. LOVOXYL [Concomitant]
  3. AMBIEN [Concomitant]

REACTIONS (5)
  - AGITATION [None]
  - ARTHRALGIA [None]
  - ASTHENIA [None]
  - INSOMNIA [None]
  - MUSCULAR WEAKNESS [None]
